FAERS Safety Report 4944834-3 (Version None)
Quarter: 2006Q1

REPORT INFORMATION
  Report Type: 
  Country: None (occurrence: None)
  Receive Date: 20060126
  Receipt Date: 20051006
  Transmission Date: 20060701
  Serious: Yes (Hospitalization)
  Sender: FDA-Public Use
  Company Number: USA0509108743

PATIENT
  Age: 74 Year
  Sex: Female

DRUGS (11)
  1. FORTEO [Suspect]
     Indication: OSTEOPOROSIS
     Dates: start: 20040801, end: 20050908
  2. VERAPAMIL [Concomitant]
  3. LISINOPRIL [Concomitant]
  4. PREDNISONE [Concomitant]
  5. ASPIRIN [Concomitant]
  6. PRILOSEC [Concomitant]
  7. PROTONIX [Concomitant]
  8. PHENYTOIN [Concomitant]
  9. LOVASTATIN [Concomitant]
  10. SINGULAIR [Concomitant]
  11. PLAVIX [Concomitant]

REACTIONS (3)
  - HYPERTENSION [None]
  - PYREXIA [None]
  - VERTIGO [None]
